FAERS Safety Report 6252751-4 (Version None)
Quarter: 2009Q2

REPORT INFORMATION
  Report Type: 
  Country: None (occurrence: None)
  Receive Date: 20090629
  Receipt Date: 20090629
  Transmission Date: 20091009
  Serious: Yes (Hospitalization, Other)
  Sender: FDA-Public Use
  Company Number: None

PATIENT
  Sex: Male
  Weight: 111.1313 kg

DRUGS (2)
  1. ZICAM [Suspect]
     Indication: NASAL CONGESTION
     Dates: start: 20080315, end: 20080413
  2. ZICAM [Suspect]
     Indication: NASOPHARYNGITIS
     Dates: start: 20080315, end: 20080413

REACTIONS (9)
  - BLOOD SODIUM DECREASED [None]
  - DYSGEUSIA [None]
  - HYPOGEUSIA [None]
  - HYPOPHAGIA [None]
  - HYPOSMIA [None]
  - PAROSMIA [None]
  - PNEUMONIA [None]
  - VOMITING [None]
  - WEIGHT DECREASED [None]
